FAERS Safety Report 16840123 (Version 9)
Quarter: 2020Q4

REPORT INFORMATION
  Report Type: Spontaneous
  Country: SE (occurrence: SE)
  Receive Date: 20190923
  Receipt Date: 20201102
  Transmission Date: 20210113
  Serious: Yes (Other)
  Sender: FDA-Public Use
  Company Number: SE-JNJFOC-20190922092

PATIENT
  Age: 5 Year
  Sex: Male

DRUGS (15)
  1. AMFETAMINE [Suspect]
     Active Substance: AMPHETAMINE
     Indication: PRODUCT USED FOR UNKNOWN INDICATION
     Route: 065
  2. ZIPRASIDONE. [Suspect]
     Active Substance: ZIPRASIDONE
     Indication: PRODUCT USED FOR UNKNOWN INDICATION
     Route: 065
  3. CHLORPROMAZINE. [Suspect]
     Active Substance: CHLORPROMAZINE
     Indication: PRODUCT USED FOR UNKNOWN INDICATION
     Route: 065
  4. QUETIAPINE. [Suspect]
     Active Substance: QUETIAPINE
     Indication: PRODUCT USED FOR UNKNOWN INDICATION
     Route: 065
  5. CONCERTA [Suspect]
     Active Substance: METHYLPHENIDATE HYDROCHLORIDE
     Route: 065
  6. ATOMOXETINE. [Suspect]
     Active Substance: ATOMOXETINE HYDROCHLORIDE
     Indication: PRODUCT USED FOR UNKNOWN INDICATION
     Route: 065
  7. CLONIDINE. [Suspect]
     Active Substance: CLONIDINE
     Indication: PRODUCT USED FOR UNKNOWN INDICATION
     Route: 065
  8. ARIPIPRAZOLE. [Suspect]
     Active Substance: ARIPIPRAZOLE
     Indication: PRODUCT USED FOR UNKNOWN INDICATION
     Route: 065
  9. CARBAMAZEPINE. [Suspect]
     Active Substance: CARBAMAZEPINE
     Indication: PRODUCT USED FOR UNKNOWN INDICATION
     Route: 065
  10. DEXAMFETAMINE [Suspect]
     Active Substance: DEXTROAMPHETAMINE
     Indication: PRODUCT USED FOR UNKNOWN INDICATION
     Route: 065
  11. VALPROIC ACID. [Suspect]
     Active Substance: VALPROIC ACID
     Indication: PRODUCT USED FOR UNKNOWN INDICATION
     Route: 065
  12. LITHIUM. [Suspect]
     Active Substance: LITHIUM
     Indication: PRODUCT USED FOR UNKNOWN INDICATION
     Route: 065
  13. ILOPERIDONE. [Suspect]
     Active Substance: ILOPERIDONE
     Indication: PRODUCT USED FOR UNKNOWN INDICATION
     Route: 065
  14. LISDEXAMFETAMINE [Suspect]
     Active Substance: LISDEXAMFETAMINE
     Indication: PRODUCT USED FOR UNKNOWN INDICATION
     Route: 065
  15. CONCERTA [Suspect]
     Active Substance: METHYLPHENIDATE HYDROCHLORIDE
     Indication: PRODUCT USED FOR UNKNOWN INDICATION
     Dosage: 18 MG, UNK, 18 MG, QMO, ADR DEVELOPED AFTER THE DOSE WAS INCREASED TO 27MG
     Route: 048

REACTIONS (34)
  - Oppositional defiant disorder [Unknown]
  - Bruxism [Unknown]
  - Muscle twitching [Recovered/Resolved]
  - Suicidal ideation [Unknown]
  - Speech disorder [Unknown]
  - Affect lability [Unknown]
  - Aggression [Unknown]
  - Insomnia [Unknown]
  - Fatigue [Unknown]
  - Trismus [Not Recovered/Not Resolved]
  - Homicidal ideation [Unknown]
  - Drug ineffective [Unknown]
  - Poor quality sleep [Unknown]
  - Gait disturbance [Recovered/Resolved]
  - Vision blurred [Unknown]
  - Off label use [Unknown]
  - Coordination abnormal [Unknown]
  - Choreoathetosis [Unknown]
  - Hyperkinesia [Unknown]
  - Irritability [Unknown]
  - Tongue disorder [Recovered/Resolved]
  - Streptococcal infection [Unknown]
  - Nervousness [Unknown]
  - Sleep disorder [Unknown]
  - Dyskinesia [Unknown]
  - Psychomotor hyperactivity [Unknown]
  - Sydenham^s chorea [Unknown]
  - Anxiety [Unknown]
  - Depressed mood [Unknown]
  - Mood altered [Unknown]
  - Product use issue [Unknown]
  - Decreased eye contact [Unknown]
  - Crying [Unknown]
  - Eye disorder [Unknown]
